FAERS Safety Report 4386443-3 (Version None)
Quarter: 2004Q2

REPORT INFORMATION
  Report Type: 
  Country: None (occurrence: None)
  Receive Date: 20040625
  Receipt Date: 20040625
  Transmission Date: 20050107
  Serious: Yes (Life-Threatening, Hospitalization)
  Sender: FDA-Public Use
  Company Number: None

PATIENT
  Sex: Female
  Weight: 63.05 kg

DRUGS (2)
  1. PROZAC [Suspect]
     Indication: DEPRESSION
     Dosage: 20 MG 3 X A DAY ORAL
     Route: 048
     Dates: start: 19920501, end: 20040624
  2. WELLBUTRIN [Suspect]
     Indication: DEPRESSION
     Dosage: 150 MG 2 X A DAY ORAL
     Route: 048
     Dates: start: 20000101, end: 20040624

REACTIONS (6)
  - AGITATION [None]
  - ANXIETY [None]
  - DEPRESSION [None]
  - INSOMNIA [None]
  - RESTLESSNESS [None]
  - SUICIDE ATTEMPT [None]
